FAERS Safety Report 9817950 (Version 2)
Quarter: 2013Q4

REPORT INFORMATION
  Report Type: Spontaneous
  Country: US (occurrence: None)
  Receive Date: 20131127
  Receipt Date: 20131127
  Transmission Date: 20140711
  Serious: Yes (Other)
  Sender: FDA-Public Use
  Company Number: 218559

PATIENT
  Age: 72 Year
  Sex: Male

DRUGS (8)
  1. PICATO GEL [Suspect]
     Indication: ACTINIC KERATOSIS
     Route: 061
     Dates: start: 20120803, end: 20120805
  2. PICATO GEL [Suspect]
     Indication: ACTINIC KERATOSIS
     Route: 061
     Dates: start: 20120803, end: 20120805
  3. POTASSIUM (POTASSIUM) [Concomitant]
  4. METOPROLOL (METOPROLOL) [Concomitant]
  5. HYDROCHLOROTHIAZIDE (HYDROCHLOROTHIAZIDE) [Concomitant]
  6. LOVISTATIN (LOVISTATIN) [Concomitant]
  7. BABY ASPIRIN (ACETYLSALICYLIC ACID) [Concomitant]
  8. MULTIVITAMIN (MULTIVITAMIN) [Concomitant]

REACTIONS (5)
  - Application site irritation [None]
  - Application site haemorrhage [None]
  - Application site erosion [None]
  - Application site pain [None]
  - Off label use [None]
